FAERS Safety Report 14343301 (Version 6)
Quarter: 2018Q2

REPORT INFORMATION
  Report Type: Report from Study
  Country: US (occurrence: US)
  Receive Date: 20180102
  Receipt Date: 20180428
  Transmission Date: 20180711
  Serious: No
  Sender: FDA-Public Use
  Company Number: PHEH2017US042350

PATIENT
  Sex: Male

DRUGS (2)
  1. COSENTYX [Suspect]
     Active Substance: SECUKINUMAB
     Indication: PSORIASIS
     Dosage: 300 MG, QMO
     Route: 058
  2. COSENTYX [Suspect]
     Active Substance: SECUKINUMAB
     Dosage: 300 MG, QMO
     Route: 058
     Dates: start: 20171229

REACTIONS (8)
  - Injection site bruising [Recovered/Resolved]
  - Carpal tunnel syndrome [Unknown]
  - Injection site haemorrhage [Unknown]
  - Device malfunction [Unknown]
  - Arthralgia [Unknown]
  - Laceration [Unknown]
  - Muscular weakness [Unknown]
  - Skin discolouration [Unknown]
